FAERS Safety Report 23817783 (Version 2)
Quarter: 2024Q2

REPORT INFORMATION
  Report Type: Spontaneous
  Country: US (occurrence: None)
  Receive Date: 20240506
  Receipt Date: 20240624
  Transmission Date: 20240716
  Serious: No
  Sender: FDA-Public Use
  Company Number: 2024A102521

PATIENT
  Age: 23197 Day

DRUGS (1)
  1. FASLODEX [Suspect]
     Active Substance: FULVESTRANT
     Route: 030

REACTIONS (8)
  - Dyspnoea [Unknown]
  - Nerve injury [Unknown]
  - Crying [Unknown]
  - Brain fog [Unknown]
  - Fatigue [Unknown]
  - Weight increased [Unknown]
  - Nausea [Unknown]
  - Screaming [Unknown]

NARRATIVE: CASE EVENT DATE: 20240423
